FAERS Safety Report 13735827 (Version 1)
Quarter: 2017Q3

REPORT INFORMATION
  Report Type: Spontaneous
  Country: US (occurrence: US)
  Receive Date: 20170707
  Receipt Date: 20170707
  Transmission Date: 20171127
  Serious: No
  Sender: FDA-Public Use
  Company Number: None

PATIENT
  Age: 51 Year
  Sex: Male

DRUGS (1)
  1. STELARA [Suspect]
     Active Substance: USTEKINUMAB
     Indication: PRODUCT USED FOR UNKNOWN INDICATION
     Dosage: 90 MG SC  EVERY 8 WEEKS
     Route: 058
     Dates: start: 20170607

REACTIONS (1)
  - Emotional disorder [None]

NARRATIVE: CASE EVENT DATE: 20170607
